FAERS Safety Report 17283007 (Version 2)
Quarter: 2022Q2

REPORT INFORMATION
  Report Type: Report from Study
  Country: US (occurrence: US)
  Receive Date: 20200117
  Receipt Date: 20220511
  Transmission Date: 20220721
  Serious: No
  Sender: FDA-Public Use
  Company Number: US-TEVAE2B_PROD-TEVA-US-09JAN2020-1251

PATIENT
  Sex: Female

DRUGS (1)
  1. CLARAVIS [Suspect]
     Active Substance: ISOTRETINOIN
     Route: 065

REACTIONS (4)
  - Eye oedema [Unknown]
  - Eye swelling [Unknown]
  - Lip dry [Unknown]
  - Arthralgia [Unknown]
